FAERS Safety Report 9376236 (Version 1)
Quarter: 2013Q3

REPORT INFORMATION
  Report Type: Spontaneous
  Country: DE (occurrence: DE)
  Receive Date: 20130701
  Receipt Date: 20130701
  Transmission Date: 20140515
  Serious: Yes (Disabling)
  Sender: FDA-Public Use
  Company Number: GXKR2013DE002264

PATIENT
  Sex: 0

DRUGS (1)
  1. LEFLUNOMIDE [Suspect]
     Indication: RHEUMATOID ARTHRITIS
     Dosage: 20 MG, UNK
     Route: 048
     Dates: start: 201212, end: 201302

REACTIONS (2)
  - Ageusia [Not Recovered/Not Resolved]
  - Hypogeusia [Not Recovered/Not Resolved]
